FAERS Safety Report 6617449-9 (Version None)
Quarter: 2010Q1

REPORT INFORMATION
  Report Type: 
  Country: None (occurrence: None)
  Receive Date: 20100308
  Receipt Date: 20100225
  Transmission Date: 20100710
  Serious: Yes (Other)
  Sender: FDA-Public Use
  Company Number: CA-JNJFOC-20100300510

PATIENT
  Sex: Female
  Weight: 70.5 kg

DRUGS (4)
  1. REMICADE [Suspect]
     Indication: CROHN'S DISEASE
     Dosage: HAD 2 LOADING DOSES
     Route: 042
  2. REMICADE [Suspect]
     Route: 042
  3. NAPROXEN [Concomitant]
  4. ZOPLICONE [Concomitant]

REACTIONS (15)
  - CHEST PAIN [None]
  - CHILLS [None]
  - COUGH [None]
  - DECREASED APPETITE [None]
  - DIARRHOEA [None]
  - FALL [None]
  - FATIGUE [None]
  - FOOT FRACTURE [None]
  - HEADACHE [None]
  - NASOPHARYNGITIS [None]
  - NECK PAIN [None]
  - PYREXIA [None]
  - RHINORRHOEA [None]
  - SENSORY LOSS [None]
  - SWELLING [None]
